FAERS Safety Report 17037292 (Version 1)
Quarter: 2019Q4

REPORT INFORMATION
  Report Type: Spontaneous
  Country: US (occurrence: US)
  Receive Date: 20191016
  Receipt Date: 20191016
  Transmission Date: 20200122
  Serious: No
  Sender: FDA-Public Use
  Company Number: None

PATIENT
  Sex: Male

DRUGS (1)
  1. ZARXIO [Suspect]
     Active Substance: FILGRASTIM-SNDZ
     Route: 058
     Dates: start: 20171214

REACTIONS (5)
  - Rash erythematous [None]
  - Arthralgia [None]
  - Pruritus [None]
  - Pain [None]
  - Acne [None]
